FAERS Safety Report 17651508 (Version 1)
Quarter: 2020Q2

REPORT INFORMATION
  Report Type: Report from Study
  Country: DE (occurrence: DE)
  Receive Date: 20200409
  Receipt Date: 20200409
  Transmission Date: 20200713
  Serious: Yes (Other)
  Sender: FDA-Public Use
  Company Number: DE-TEVA-2020-DE-1219429

PATIENT
  Age: 52 Year
  Sex: Female

DRUGS (9)
  1. MACROGOL [Concomitant]
     Active Substance: POLYETHYLENE GLYCOLS
     Route: 065
  2. PANTOPRAZOLE [Concomitant]
     Active Substance: PANTOPRAZOLE
     Route: 065
  3. ZOPICLONE [Suspect]
     Active Substance: ZOPICLONE
     Indication: MAJOR DEPRESSION
     Dosage: 7.5 MILLIGRAM DAILY;
     Route: 065
  4. OPIPRAMOL [Suspect]
     Active Substance: OPIPRAMOL
     Indication: MAJOR DEPRESSION
     Dosage: 250 MILLIGRAM DAILY;
     Route: 065
  5. MIRTAZAPINE. [Suspect]
     Active Substance: MIRTAZAPINE
     Indication: MAJOR DEPRESSION
     Dosage: 30 MILLIGRAM DAILY;
     Route: 065
  6. KEPINOL [Concomitant]
     Active Substance: SULFAMETHOXAZOLE\TRIMETHOPRIM
     Route: 065
  7. PREDNISOLONE. [Concomitant]
     Active Substance: PREDNISOLONE
     Route: 065
  8. L-THYROXINE [Concomitant]
     Active Substance: LEVOTHYROXINE
     Route: 065
  9. ESOMEPRAZOLE. [Concomitant]
     Active Substance: ESOMEPRAZOLE MAGNESIUM
     Route: 065

REACTIONS (1)
  - Drug-induced liver injury [Recovered/Resolved]
